FAERS Safety Report 5102774-3 (Version None)
Quarter: 2006Q3

REPORT INFORMATION
  Report Type: 
  Country: None (occurrence: None)
  Receive Date: 20060907
  Receipt Date: 20060822
  Transmission Date: 20061208
  Serious: Yes (Hospitalization)
  Sender: FDA-Public Use
  Company Number: 2006001649

PATIENT
  Age: 54 Year
  Sex: Male

DRUGS (1)
  1. TARCEVA [Suspect]
     Indication: LUNG CANCER METASTATIC
     Dosage: 150 MG (QD), ORAL
     Route: 048
     Dates: start: 20060415, end: 20060515

REACTIONS (4)
  - CARDIOMYOPATHY [None]
  - COUGH [None]
  - HYPERKINETIC HEART SYNDROME [None]
  - LUNG INFILTRATION [None]
